FAERS Safety Report 4589161-1 (Version None)
Quarter: 2005Q1

REPORT INFORMATION
  Report Type: 
  Country: None (occurrence: None)
  Receive Date: 20050215
  Receipt Date: 20050215
  Transmission Date: 20050727
  Serious: Yes (Other)
  Sender: FDA-Public Use
  Company Number: None

PATIENT
  Age: 18 Year
  Sex: Male
  Weight: 127.0072 kg

DRUGS (1)
  1. ADDERALL  15MG  SHIRE USINC. [Suspect]
     Indication: ATTENTION DEFICIT/HYPERACTIVITY DISORDER
     Dosage: 15MG  1 CAPSULE ORAL
     Route: 048
     Dates: start: 20020101, end: 20051209

REACTIONS (2)
  - CHEST PAIN [None]
  - PALPITATIONS [None]
